FAERS Safety Report 23525601 (Version 1)
Quarter: 2024Q1

REPORT INFORMATION
  Report Type: Spontaneous
  Country: BR (occurrence: BR)
  Receive Date: 20240215
  Receipt Date: 20240215
  Transmission Date: 20240410
  Serious: Yes (Other)
  Sender: FDA-Public Use
  Company Number: BR-GLAXOSMITHKLINE-BR2022AMR086888

PATIENT

DRUGS (8)
  1. NUCALA [Suspect]
     Active Substance: MEPOLIZUMAB
     Indication: Asthma
     Dosage: 100 MG (EVERY 30 DAYS)
     Route: 058
     Dates: start: 20190618
  2. NUCALA [Suspect]
     Active Substance: MEPOLIZUMAB
     Dosage: 100 MG
     Route: 058
     Dates: start: 20230113
  3. NUCALA [Suspect]
     Active Substance: MEPOLIZUMAB
     Dosage: 100 MG
     Route: 058
     Dates: start: 20230208
  4. SERETIDE [Concomitant]
     Active Substance: FLUTICASONE PROPIONATE\SALMETEROL XINAFOATE
     Indication: Product used for unknown indication
     Dosage: 2 DF, BID (500 MG)
  5. BECLOMETHASONE DIPROPIONATE [Concomitant]
     Active Substance: BECLOMETHASONE DIPROPIONATE
     Indication: Product used for unknown indication
     Dosage: 2 DF, BID (250 MG)
  6. SPIRIVA [Concomitant]
     Active Substance: TIOTROPIUM BROMIDE MONOHYDRATE
     Indication: Product used for unknown indication
     Dosage: UNK UNK, BID
  7. ALBUTEROL [Concomitant]
     Active Substance: ALBUTEROL
     Indication: Product used for unknown indication
     Dosage: UNK
  8. FLUTICASONE FUROATE [Concomitant]
     Active Substance: FLUTICASONE FUROATE
     Indication: Product used for unknown indication
     Dosage: UNK

REACTIONS (4)
  - Surgery [Unknown]
  - Sinusitis [Unknown]
  - Exposure during pregnancy [Unknown]
  - Inappropriate schedule of product administration [Unknown]
